FAERS Safety Report 6647530-X (Version None)
Quarter: 2010Q1

REPORT INFORMATION
  Report Type: 
  Country: None (occurrence: None)
  Receive Date: 20100323
  Receipt Date: 20100323
  Transmission Date: 20100710
  Serious: Yes (Hospitalization)
  Sender: FDA-Public Use
  Company Number: None

PATIENT
  Age: 55 Year
  Sex: Male
  Weight: 116.36 kg

DRUGS (1)
  1. LISINOPRIL [Suspect]
     Dosage: 10 MG ONCE PO
     Route: 048
     Dates: start: 20090223, end: 20090311

REACTIONS (3)
  - ANGIOEDEMA [None]
  - DIZZINESS [None]
  - RASH [None]
